FAERS Safety Report 13091301 (Version 1)
Quarter: 2017Q1

REPORT INFORMATION
  Report Type: Spontaneous
  Country: US (occurrence: US)
  Receive Date: 20170106
  Receipt Date: 20170106
  Transmission Date: 20170428
  Serious: No
  Sender: FDA-Public Use
  Company Number: US-JNJFOC-20161213040

PATIENT
  Age: 54 Year
  Sex: Female
  Weight: 68.04 kg

DRUGS (3)
  1. MOTRIN [Suspect]
     Active Substance: IBUPROFEN
     Indication: PAIN
     Route: 048
     Dates: start: 20161208, end: 20161208
  2. MOTRIN [Suspect]
     Active Substance: IBUPROFEN
     Indication: INFLAMMATION
     Route: 048
     Dates: start: 20161208, end: 20161208
  3. MOTRIN [Suspect]
     Active Substance: IBUPROFEN
     Indication: SWELLING
     Route: 048
     Dates: start: 20161208, end: 20161208

REACTIONS (2)
  - Product use issue [Unknown]
  - Off label use [Unknown]
